FAERS Safety Report 19174989 (Version 1)
Quarter: 2021Q2

REPORT INFORMATION
  Report Type: Spontaneous
  Country: US (occurrence: US)
  Receive Date: 20210424
  Receipt Date: 20210424
  Transmission Date: 20210717
  Serious: No
  Sender: FDA-Public Use
  Company Number: US-SEAGEN-2021SGN02339

PATIENT
  Sex: Female

DRUGS (3)
  1. TUKYSA [Suspect]
     Active Substance: TUCATINIB
     Dosage: 300 MG, QPM
     Route: 048
     Dates: start: 202010
  2. TUKYSA [Suspect]
     Active Substance: TUCATINIB
     Dosage: 150 MG, QAM
     Route: 048
     Dates: start: 202010
  3. TUKYSA [Suspect]
     Active Substance: TUCATINIB
     Indication: PRODUCT USED FOR UNKNOWN INDICATION
     Dosage: 300 MG, BID
     Route: 048
     Dates: start: 202008

REACTIONS (1)
  - Diarrhoea [Unknown]
